FAERS Safety Report 8264172-3 (Version None)
Quarter: 2012Q2

REPORT INFORMATION
  Report Type: 
  Country: None (occurrence: None)
  Receive Date: 20120403
  Receipt Date: 20120312
  Transmission Date: 20120825
  Serious: Yes (Life-Threatening, Other)
  Sender: FDA-Public Use
  Company Number: 54973 AE # 804

PATIENT
  Age: 6 Month
  Sex: Female

DRUGS (2)
  1. HYLAND'S BABY TEETHING TABLETS [Suspect]
     Indication: TEETHING
     Dosage: 2 TABLETS BID PRN X 1 MO
  2. TYLENOL (CAPLET) [Suspect]

REACTIONS (2)
  - DYSPNOEA [None]
  - SOMNOLENCE [None]
